FAERS Safety Report 12625140 (Version 1)
Quarter: 2016Q3

REPORT INFORMATION
  Report Type: Report from Study
  Country: US (occurrence: US)
  Receive Date: 20160805
  Receipt Date: 20160805
  Transmission Date: 20161109
  Serious: Yes (Hospitalization)
  Sender: FDA-Public Use
  Company Number: US-BAYER-2016-148399

PATIENT
  Age: 59 Year
  Sex: Male

DRUGS (1)
  1. NEXAVAR [Suspect]
     Active Substance: SORAFENIB
     Indication: ACUTE MYELOID LEUKAEMIA
     Dosage: 400 MG, BID
     Route: 048
     Dates: start: 20160715

REACTIONS (10)
  - White blood cell count decreased [None]
  - Platelet count decreased [None]
  - Dry skin [None]
  - Diarrhoea [None]
  - Laboratory test abnormal [None]
  - Haemoglobin decreased [None]
  - Fatigue [None]
  - Pyrexia [None]
  - Decreased appetite [None]
  - Off label use [None]

NARRATIVE: CASE EVENT DATE: 201607
